FAERS Safety Report 20492658 (Version 2)
Quarter: 2022Q1

REPORT INFORMATION
  Report Type: Spontaneous
  Country: IL (occurrence: IL)
  Receive Date: 20220219
  Receipt Date: 20220225
  Transmission Date: 20220424
  Serious: Yes (Death, Other)
  Sender: FDA-Public Use
  Company Number: IL-ALXN-A202202096

PATIENT
  Age: 56 Year
  Sex: Male
  Weight: 102 kg

DRUGS (9)
  1. SOLIRIS [Suspect]
     Active Substance: ECULIZUMAB
     Indication: Atypical haemolytic uraemic syndrome
     Dosage: 900 MG, UNK
     Route: 065
     Dates: start: 20220211
  2. APIDRA [Concomitant]
     Active Substance: INSULIN GLULISINE
     Indication: Diabetes mellitus
     Dosage: 4 UNITS, TID
     Route: 065
  3. ATORVASTATIN CALCIUM\EZETIMIBE [Concomitant]
     Active Substance: ATORVASTATIN CALCIUM\EZETIMIBE
     Indication: Blood cholesterol increased
     Dosage: 10/40MG 1X1
     Route: 065
     Dates: start: 20220208, end: 20220214
  4. BISOPROLOL FUMARATE [Concomitant]
     Active Substance: BISOPROLOL FUMARATE
     Indication: Product used for unknown indication
     Dosage: 2.5 MG, QD
     Route: 065
     Dates: start: 20220208, end: 20220214
  5. LANTUS [Concomitant]
     Active Substance: INSULIN GLARGINE
     Indication: Diabetes mellitus
     Dosage: 10 UNITS, QD
     Route: 065
     Dates: start: 20220210, end: 20220214
  6. RENVELA [Concomitant]
     Active Substance: SEVELAMER CARBONATE
     Indication: Product used for unknown indication
     Dosage: 2400 MG, TID
     Route: 048
     Dates: start: 20220210, end: 20220214
  7. SOLU-MEDROL [Concomitant]
     Active Substance: METHYLPREDNISOLONE SODIUM SUCCINATE
     Indication: Immunosuppression
     Dosage: 100 MG, UNK
     Route: 042
     Dates: start: 20220209, end: 20220213
  8. SOLU-MEDROL [Concomitant]
     Active Substance: METHYLPREDNISOLONE SODIUM SUCCINATE
     Dosage: 50 MG, UNK
     Route: 042
     Dates: start: 20220214
  9. FEXOFENADINE [Concomitant]
     Active Substance: FEXOFENADINE HYDROCHLORIDE
     Indication: Histamine abnormal
     Dosage: 180 MG 1X1, UNK
     Route: 065
     Dates: start: 20220209, end: 20220214

REACTIONS (5)
  - Infection [Fatal]
  - Septic shock [Fatal]
  - Pulseless electrical activity [Fatal]
  - Respiratory failure [Fatal]
  - Plasma cell myeloma [Unknown]

NARRATIVE: CASE EVENT DATE: 20220201
